FAERS Safety Report 5972424-2 (Version None)
Quarter: 2008Q4

REPORT INFORMATION
  Report Type: 
  Country: None (occurrence: None)
  Receive Date: 20081125
  Receipt Date: 20081110
  Transmission Date: 20090506
  Serious: Yes (Hospitalization)
  Sender: FDA-Public Use
  Company Number: 16856

PATIENT
  Sex: Male

DRUGS (1)
  1. MORPHINE SULFATE [Suspect]
     Indication: PROCEDURAL PAIN
     Dates: start: 20080511, end: 20080601

REACTIONS (11)
  - ABDOMINAL PAIN [None]
  - ASTHENIA [None]
  - BLOOD URINE PRESENT [None]
  - HYPOTENSION [None]
  - LISTLESS [None]
  - MOOD ALTERED [None]
  - NAUSEA [None]
  - PERSONALITY CHANGE [None]
  - PRODUCT QUALITY ISSUE [None]
  - PULSE PRESSURE DECREASED [None]
  - VOMITING [None]
